FAERS Safety Report 16484840 (Version 1)
Quarter: 2019Q2

REPORT INFORMATION
  Report Type: Spontaneous
  Country: US (occurrence: US)
  Receive Date: 20190516
  Receipt Date: 20190516
  Transmission Date: 20190711
  Serious: Yes (Hospitalization)
  Sender: FDA-Public Use
  Company Number: None

PATIENT
  Age: 82 Year
  Sex: Female

DRUGS (19)
  1. OXYCODONE [Concomitant]
     Active Substance: OXYCODONE
  2. ADVAIR DISKUS [Concomitant]
     Active Substance: FLUTICASONE PROPIONATE\SALMETEROL XINAFOATE
  3. TROSPIUM [Concomitant]
     Active Substance: TROSPIUM
  4. WARFARIN [Concomitant]
     Active Substance: WARFARIN
  5. CALCIUM [Concomitant]
     Active Substance: CALCIUM
  6. SUPER DHA [Concomitant]
  7. SILDENAFIL. [Concomitant]
     Active Substance: SILDENAFIL
  8. XALATAN [Concomitant]
     Active Substance: LATANOPROST
  9. OXYGEN SUPPLEMENTAL [Concomitant]
     Active Substance: OXYGEN
  10. LETAIRIS [Suspect]
     Active Substance: AMBRISENTAN
     Indication: PULMONARY ARTERIAL HYPERTENSION
     Route: 048
     Dates: start: 201208
  11. VIT B-12 [Concomitant]
  12. K-TAB [Concomitant]
     Active Substance: POTASSIUM CHLORIDE
  13. FUROSEMIDE. [Concomitant]
     Active Substance: FUROSEMIDE
  14. ATROVENT HFA [Concomitant]
     Active Substance: IPRATROPIUM BROMIDE
  15. DILT-XF [Concomitant]
  16. RANITIDINE. [Concomitant]
     Active Substance: RANITIDINE
  17. CLONAZEPAM. [Concomitant]
     Active Substance: CLONAZEPAM
  18. FLONASE [Concomitant]
     Active Substance: FLUTICASONE PROPIONATE
  19. CARBONATE-VIT D3 [Concomitant]

REACTIONS (5)
  - Metapneumovirus infection [None]
  - Bronchitis [None]
  - Heart rate increased [None]
  - Hypoxia [None]
  - Cough [None]

NARRATIVE: CASE EVENT DATE: 20190510
